FAERS Safety Report 14821110 (Version 1)
Quarter: 2018Q2

REPORT INFORMATION
  Report Type: Spontaneous
  Country: CA (occurrence: CA)
  Receive Date: 20180427
  Receipt Date: 20180427
  Transmission Date: 20180711
  Serious: Yes (Other)
  Sender: FDA-Public Use
  Company Number: CA-SA-2018SA108231

PATIENT
  Sex: Female

DRUGS (5)
  1. CELEBREX [Concomitant]
     Active Substance: CELECOXIB
     Indication: RHEUMATOID ARTHRITIS
     Route: 065
  2. METHOTREXATE. [Concomitant]
     Active Substance: METHOTREXATE
     Indication: RHEUMATOID ARTHRITIS
     Route: 065
  3. PLAQUENIL [Suspect]
     Active Substance: HYDROXYCHLOROQUINE SULFATE
     Route: 048
     Dates: end: 20180404
  4. ARAVA [Suspect]
     Active Substance: LEFLUNOMIDE
     Indication: RHEUMATOID ARTHRITIS
     Route: 048
     Dates: end: 20180404
  5. ISONIAZID. [Concomitant]
     Active Substance: ISONIAZID
     Route: 065

REACTIONS (10)
  - Cellulitis [Unknown]
  - Skin swelling [Unknown]
  - Pain [Unknown]
  - Arthralgia [Unknown]
  - Skin mass [Unknown]
  - Mycobacterium tuberculosis complex test positive [Unknown]
  - Psoriasis [Unknown]
  - Erythema [Unknown]
  - Drug ineffective [Unknown]
  - Musculoskeletal pain [Unknown]
